FAERS Safety Report 18660335 (Version 1)
Quarter: 2020Q4

REPORT INFORMATION
  Report Type: Spontaneous
  Country: US (occurrence: US)
  Receive Date: 20201224
  Receipt Date: 20201224
  Transmission Date: 20210114
  Serious: Yes (Other)
  Sender: FDA-Public Use
  Company Number: US-JNJFOC-20201232165

PATIENT
  Age: 27 Year
  Sex: Female

DRUGS (1)
  1. ULTRACET [Suspect]
     Active Substance: ACETAMINOPHEN\TRAMADOL HYDROCHLORIDE
     Indication: PRODUCT USED FOR UNKNOWN INDICATION
     Route: 065

REACTIONS (5)
  - Hyperreflexia [Not Recovered/Not Resolved]
  - Hypoglycaemia [Recovering/Resolving]
  - Serum serotonin increased [Unknown]
  - Clonus [Not Recovered/Not Resolved]
  - Seizure [Recovering/Resolving]
